FAERS Safety Report 9502408 (Version 1)
Quarter: 2013Q3

REPORT INFORMATION
  Report Type: Spontaneous
  Country: US (occurrence: US)
  Receive Date: 20130906
  Receipt Date: 20130906
  Transmission Date: 20140515
  Serious: Yes (Other)
  Sender: FDA-Public Use
  Company Number: US-MERCK-1309USA001285

PATIENT
  Age: 56 Year
  Sex: Female

DRUGS (8)
  1. REBETOL [Suspect]
     Indication: CHRONIC HEPATITIS C
     Dosage: 1200 MG
  2. PEGINTERFERON ALFA-2A [Suspect]
     Indication: CHRONIC HEPATITIS C
     Dosage: 180 MICROGRAM, QW
     Route: 058
  3. TELAPREVIR [Suspect]
     Indication: CHRONIC HEPATITIS C
     Dosage: 2250 MG
  4. METFORMIN [Concomitant]
     Indication: HEPATIC STEATOSIS
  5. IBUPROFEN [Concomitant]
     Indication: CARPAL TUNNEL SYNDROME
  6. VITAMINS (UNSPECIFIED) [Concomitant]
  7. IRON (UNSPECIFIED) [Concomitant]
  8. VITAMIN E [Concomitant]

REACTIONS (5)
  - Pancytopenia [Unknown]
  - Fatigue [Recovering/Resolving]
  - Anaemia [Recovering/Resolving]
  - Depression [Recovered/Resolved]
  - Suicidal ideation [Unknown]
